FAERS Safety Report 18550589 (Version 1)
Quarter: 2020Q4

REPORT INFORMATION
  Report Type: Spontaneous
  Country: US (occurrence: US)
  Receive Date: 20201126
  Receipt Date: 20201126
  Transmission Date: 20210114
  Serious: Yes (Hospitalization)
  Sender: FDA-Public Use
  Company Number: US-TEVA-2020-US-1836811

PATIENT
  Age: 57 Year
  Sex: Male

DRUGS (3)
  1. CLOZAPINE TEVA [Suspect]
     Active Substance: CLOZAPINE
     Indication: SCHIZOPHRENIA
     Dosage: 100 MG-200 MG OF AM AND 300 MG HS
     Route: 065
  2. COGENTIN [Concomitant]
     Active Substance: BENZTROPINE MESYLATE
     Dosage: 2 MILLIGRAM DAILY;
     Route: 048
  3. CLOZARIL [Concomitant]
     Active Substance: CLOZAPINE
     Dosage: 700 MILLIGRAM DAILY;
     Route: 048

REACTIONS (2)
  - Condition aggravated [Recovered/Resolved with Sequelae]
  - Product dose omission issue [Unknown]

NARRATIVE: CASE EVENT DATE: 20200729
